FAERS Safety Report 5374171-7 (Version None)
Quarter: 2007Q2

REPORT INFORMATION
  Report Type: 
  Country: None (occurrence: None)
  Receive Date: 20070627
  Receipt Date: 20061103
  Transmission Date: 20071010
  Serious: Yes (Hospitalization)
  Sender: FDA-Public Use
  Company Number: 470120

PATIENT
  Age: 83 Year
  Sex: Male
  Weight: 164 kg

DRUGS (1)
  1. XELODA [Suspect]
     Indication: PHARYNGEAL CANCER METASTATIC
     Dosage: 1500 MG 2 PER DAY ORAL
     Route: 048
     Dates: start: 20060516, end: 20061026

REACTIONS (1)
  - DEHYDRATION [None]
